FAERS Safety Report 11441193 (Version 1)
Quarter: 2015Q3

REPORT INFORMATION
  Report Type: Spontaneous
  Country: US (occurrence: US)
  Receive Date: 20150821
  Receipt Date: 20150821
  Transmission Date: 20151125
  Serious: No
  Sender: FDA-Public Use
  Company Number: US-ELI_LILLY_AND_COMPANY-US200802006538

PATIENT
  Age: 59 Year
  Sex: Female

DRUGS (1)
  1. CYMBALTA [Suspect]
     Active Substance: DULOXETINE HYDROCHLORIDE
     Indication: DEPRESSION
     Dosage: 30 MG, UNK
     Dates: start: 20080221

REACTIONS (12)
  - Hot flush [Unknown]
  - Dysuria [Not Recovered/Not Resolved]
  - Insomnia [Unknown]
  - Malaise [Not Recovered/Not Resolved]
  - Irritability [Not Recovered/Not Resolved]
  - Burning sensation [Not Recovered/Not Resolved]
  - Mood altered [Unknown]
  - Asthenia [Unknown]
  - Discomfort [Not Recovered/Not Resolved]
  - Micturition disorder [Not Recovered/Not Resolved]
  - Headache [Recovered/Resolved]
  - Nervousness [Unknown]

NARRATIVE: CASE EVENT DATE: 2008
